FAERS Safety Report 5922619-9 (Version None)
Quarter: 2008Q4

REPORT INFORMATION
  Report Type: 
  Country: None (occurrence: None)
  Receive Date: 20081017
  Receipt Date: 20081006
  Transmission Date: 20090506
  Serious: Yes (Death)
  Sender: FDA-Public Use
  Company Number: TW-ROCHE-590492

PATIENT

DRUGS (1)
  1. CEFTRIAXONE [Suspect]
     Dosage: INDICATION: BILIARY OBSTRUCTION
     Route: 065
     Dates: start: 20050101

REACTIONS (2)
  - SEPTIC SHOCK [None]
  - TOXIC EPIDERMAL NECROLYSIS [None]
